FAERS Safety Report 7178545-3 (Version None)
Quarter: 2010Q4

REPORT INFORMATION
  Report Type: 
  Country: None (occurrence: None)
  Receive Date: 20101221
  Receipt Date: 20101210
  Transmission Date: 20110411
  Serious: Yes (Hospitalization)
  Sender: FDA-Public Use
  Company Number: US-BIOGENIDEC-2010BI040018

PATIENT
  Age: 42 Year
  Sex: Female

DRUGS (3)
  1. TYSABRI [Suspect]
     Indication: MULTIPLE SCLEROSIS
     Route: 042
     Dates: start: 20100312
  2. VYVANSE [Concomitant]
     Indication: FATIGUE
  3. NUVIGIL [Concomitant]
     Indication: FATIGUE

REACTIONS (14)
  - ADVERSE DRUG REACTION [None]
  - BLADDER DISORDER [None]
  - CONTUSION [None]
  - EYE PAIN [None]
  - FALL [None]
  - FATIGUE [None]
  - HEADACHE [None]
  - HYPOAESTHESIA FACIAL [None]
  - MOBILITY DECREASED [None]
  - MULTIPLE SCLEROSIS RELAPSE [None]
  - NASOPHARYNGITIS [None]
  - PAIN [None]
  - SINUSITIS [None]
  - URINARY TRACT INFECTION [None]
